FAERS Safety Report 11458838 (Version 1)
Quarter: 2015Q3

REPORT INFORMATION
  Report Type: Spontaneous
  Country: US (occurrence: US)
  Receive Date: 20150904
  Receipt Date: 20150904
  Transmission Date: 20151125
  Serious: Yes (Other)
  Sender: FDA-Public Use
  Company Number: US-TAKEDA-2014TUS005433

PATIENT

DRUGS (23)
  1. AVANDIA [Concomitant]
     Active Substance: ROSIGLITAZONE MALEATE
     Dosage: 4 MG QD, AT BEDTIME
     Dates: start: 20050609, end: 20070223
  2. LANTUS [Concomitant]
     Active Substance: INSULIN GLARGINE
     Dosage: U-100 10 ML 40 IU IN EVENING
     Dates: start: 20111111, end: 20120430
  3. ACTOS [Suspect]
     Active Substance: PIOGLITAZONE HYDROCHLORIDE
     Indication: TYPE 2 DIABETES MELLITUS
     Dosage: 30 MG, UNK
     Route: 048
     Dates: start: 20070702, end: 20081207
  4. METFORMIN [Concomitant]
     Active Substance: METFORMIN HYDROCHLORIDE
     Dosage: 500 MG ER XR 24H TAB, QD
     Dates: start: 20140416
  5. METFORMIN [Concomitant]
     Active Substance: METFORMIN HYDROCHLORIDE
     Dosage: 500 MG 2 IN AM 1 PM, UNK
     Route: 048
     Dates: start: 20140604
  6. LANTUS [Concomitant]
     Active Substance: INSULIN GLARGINE
     Dosage: U-100 10 ML, UNK
     Dates: start: 20070510
  7. LANTUS [Concomitant]
     Active Substance: INSULIN GLARGINE
     Dosage: U-100 10 ML 56 UNITS IN THE EVENING
     Dates: start: 201407
  8. METFORMIN [Concomitant]
     Active Substance: METFORMIN HYDROCHLORIDE
     Dosage: 500 MG 2 IN AM, 1IN PM, UNK
     Route: 048
     Dates: start: 20140418, end: 20140506
  9. JANUVIA [Concomitant]
     Active Substance: SITAGLIPTIN PHOSPHATE
     Dosage: 100 MG, UNK
     Dates: start: 20070516
  10. ACTOPLUS MET [Suspect]
     Active Substance: METFORMIN HYDROCHLORIDE\PIOGLITAZONE HYDROCHLORIDE
     Indication: TYPE 2 DIABETES MELLITUS
     Dosage: 15/850 BID, UNK
     Route: 048
     Dates: start: 20110208, end: 20110808
  11. METFORMIN [Concomitant]
     Active Substance: METFORMIN HYDROCHLORIDE
     Dosage: 500 MG, BID
     Dates: start: 20140523, end: 20140604
  12. HUMALOG [Concomitant]
     Active Substance: INSULIN LISPRO
     Dosage: 10ML SLIDING SCALE, UNK
     Dates: start: 20081231
  13. LANTUS [Concomitant]
     Active Substance: INSULIN GLARGINE
     Dosage: U-100 10 ML 78 IU IN THE EVENING
     Dates: start: 20130304, end: 20131122
  14. LANTUS [Concomitant]
     Active Substance: INSULIN GLARGINE
     Dosage: U-100 10 ML 75 IU IN THE EVENING, PLUS INCREASE BY ONE EVERY THREE NIGHTS UNTIL FBS LESS THAN 150
     Dates: start: 20120803, end: 20130304
  15. ACTOPLUS MET [Suspect]
     Active Substance: METFORMIN HYDROCHLORIDE\PIOGLITAZONE HYDROCHLORIDE
     Dosage: 15/850 TID, UNK
     Route: 048
     Dates: start: 20110812, end: 20111216
  16. GLUCOPHAGE [Concomitant]
     Active Substance: METFORMIN HYDROCHLORIDE
     Dosage: 500 MG XR TAB, BID WITH TWO REFILLS
     Dates: start: 20050912, end: 20080317
  17. LANTUS [Concomitant]
     Active Substance: INSULIN GLARGINE
     Dosage: U-100 10 ML 70 IU IN THE EVENING
     Dates: start: 20131122, end: 20140416
  18. LANTUS [Concomitant]
     Active Substance: INSULIN GLARGINE
     Dosage: U-100 10 ML 80 UNITS IN THE EVENING
     Dates: start: 20140416, end: 20140418
  19. METFORMIN [Concomitant]
     Active Substance: METFORMIN HYDROCHLORIDE
     Dosage: 500 MG 4 TAB, BID
     Dates: start: 20070702
  20. METFORMIN [Concomitant]
     Active Substance: METFORMIN HYDROCHLORIDE
     Dosage: 500 MG, BID
     Dates: start: 20130426, end: 20140416
  21. METFORMIN [Concomitant]
     Active Substance: METFORMIN HYDROCHLORIDE
     Dosage: 1000 MG, QD
     Dates: start: 20140506, end: 20140523
  22. LANTUS [Concomitant]
     Active Substance: INSULIN GLARGINE
     Dosage: U-100 10 ML 70 IU IN THE EVENING
     Dates: start: 20120430, end: 20120803
  23. LANTUS [Concomitant]
     Active Substance: INSULIN GLARGINE
     Dosage: U-100 10 ML 40 UNITS IN THE EVENING
     Dates: start: 20140522

REACTIONS (1)
  - Bladder cancer [Unknown]

NARRATIVE: CASE EVENT DATE: 20130510
